FAERS Safety Report 16403347 (Version 1)
Quarter: 2019Q2

REPORT INFORMATION
  Report Type: Spontaneous
  Country: US (occurrence: US)
  Receive Date: 20190607
  Receipt Date: 20190607
  Transmission Date: 20190711
  Serious: No
  Sender: FDA-Public Use
  Company Number: US-ASTRAZENECA-2019SE72393

PATIENT
  Sex: Female
  Weight: 54.9 kg

DRUGS (3)
  1. FOLIC ACID. [Concomitant]
     Active Substance: FOLIC ACID
     Dosage: UNKNOWN
  2. LYNPARZA [Suspect]
     Active Substance: OLAPARIB
     Indication: BRCA1 GENE MUTATION
     Dosage: 2 PILLS EVERY 12 HOURS FOR THE
     Route: 048
     Dates: start: 201903
  3. VITAMIN B NOS [Concomitant]
     Active Substance: VITAMIN B
     Dosage: UNKNOWN

REACTIONS (3)
  - Weight increased [Unknown]
  - Fatigue [Unknown]
  - Dysgeusia [Unknown]

NARRATIVE: CASE EVENT DATE: 20190430
